FAERS Safety Report 17364676 (Version 5)
Quarter: 2020Q3

REPORT INFORMATION
  Report Type: Other
  Country: US (occurrence: US)
  Receive Date: 20200204
  Receipt Date: 20200908
  Transmission Date: 20201102
  Serious: Yes (Life-Threatening, Hospitalization, Other)
  Sender: FDA-Public Use
  Company Number: US-ROCHE-2463038

PATIENT
  Age: 55 Year
  Sex: Female
  Weight: 81.72 kg

DRUGS (34)
  1. ESCITALOPRAM [Concomitant]
     Active Substance: ESCITALOPRAM OXALATE
     Indication: DEPRESSION
     Route: 048
  2. PRILOSEC [Concomitant]
     Active Substance: OMEPRAZOLE MAGNESIUM
     Indication: GASTROOESOPHAGEAL REFLUX DISEASE
     Dosage: ONGOING: YES
     Route: 048
  3. TYLENOL [Concomitant]
     Active Substance: ACETAMINOPHEN
     Indication: PAIN
     Dosage: ONGOING: YES
     Route: 048
  4. OCREVUS [Suspect]
     Active Substance: OCRELIZUMAB
     Indication: RELAPSING-REMITTING MULTIPLE SCLEROSIS
     Dosage: SECOND DOSE ON 15/NOV/2020
     Route: 042
     Dates: start: 20191101
  5. CLONAZEPAM. [Suspect]
     Active Substance: CLONAZEPAM
     Indication: GENERALISED ANXIETY DISORDER
     Dosage: 0.5 MG IN AM; 1.0 MG IN NIGHT
     Route: 048
     Dates: start: 20110214, end: 201912
  6. TOPAMAX [Concomitant]
     Active Substance: TOPIRAMATE
     Indication: ANXIETY
  7. VITAMIN D3 [Concomitant]
     Active Substance: CHOLECALCIFEROL
  8. NEURONTIN [Concomitant]
     Active Substance: GABAPENTIN
     Indication: ANXIETY
  9. VITAMIN B6 [Concomitant]
     Active Substance: PYRIDOXINE HYDROCHLORIDE
     Dosage: ONGOING: YES
     Route: 048
  10. RITUXAN [Suspect]
     Active Substance: RITUXIMAB
     Route: 042
     Dates: start: 20190111
  11. PRAMIPEXOLE. [Concomitant]
     Active Substance: PRAMIPEXOLE
     Indication: RESTLESS LEGS SYNDROME
  12. VALACYCLOVIR [Concomitant]
     Active Substance: VALACYCLOVIR HYDROCHLORIDE
     Indication: HERPES SIMPLEX
  13. DETROL [Concomitant]
     Active Substance: TOLTERODINE TARTRATE
     Dosage: ONGOING: YES
     Route: 048
  14. CBD [Concomitant]
     Active Substance: CANNABIDIOL
     Indication: PAIN
     Dosage: ONGOING: YES; APPLY TO AFFECTED AREA
     Route: 061
  15. CLONAZEPAM. [Suspect]
     Active Substance: CLONAZEPAM
     Indication: POST-TRAUMATIC STRESS DISORDER
  16. DALFAMPRIDINE. [Concomitant]
     Active Substance: DALFAMPRIDINE
  17. BACLOFEN. [Concomitant]
     Active Substance: BACLOFEN
     Dosage: NIGHT DOSE
     Route: 048
     Dates: start: 202001
  18. ALBUTEROL SULFATE. [Concomitant]
     Active Substance: ALBUTEROL SULFATE
     Indication: ASTHMA EXERCISE INDUCED
  19. MAGNESIUM [Concomitant]
     Active Substance: MAGNESIUM
     Route: 048
  20. RITUXAN [Suspect]
     Active Substance: RITUXIMAB
     Dosage: NO
     Route: 042
     Dates: end: 2017
  21. RITUXAN [Suspect]
     Active Substance: RITUXIMAB
     Route: 042
     Dates: start: 20191115
  22. BACLOFEN. [Concomitant]
     Active Substance: BACLOFEN
     Dosage: ONGOING: YES; 40MG 3X/DAY AND 100MG AT NIGHT
     Route: 048
  23. TOPAMAX [Concomitant]
     Active Substance: TOPIRAMATE
     Indication: MIGRAINE
     Dosage: AT NIGHT
     Route: 048
  24. OMEPRAZOLE. [Concomitant]
     Active Substance: OMEPRAZOLE
     Indication: GASTROOESOPHAGEAL REFLUX DISEASE
     Dosage: AT BEDTIME
     Route: 048
  25. OMEPRAZOLE. [Concomitant]
     Active Substance: OMEPRAZOLE
     Route: 048
  26. DICYCLOMINE [Concomitant]
     Active Substance: DICYCLOMINE HYDROCHLORIDE
     Indication: MUSCLE SPASMS
     Route: 048
  27. MAGNESIUM [Concomitant]
     Active Substance: MAGNESIUM
     Route: 048
  28. RITUXAN [Suspect]
     Active Substance: RITUXIMAB
     Indication: RELAPSING-REMITTING MULTIPLE SCLEROSIS
     Dosage: NO
     Route: 042
     Dates: start: 2015
  29. GLIPIZIDE. [Concomitant]
     Active Substance: GLIPIZIDE
     Indication: TYPE 2 DIABETES MELLITUS
     Dosage: AT DINNER
     Route: 048
  30. ESCITALOPRAM [Concomitant]
     Active Substance: ESCITALOPRAM OXALATE
     Indication: DEPRESSION
     Dosage: ONGOING: YES
     Route: 048
  31. IBUPROFEN. [Concomitant]
     Active Substance: IBUPROFEN
     Indication: PAIN
     Dosage: ONGOING: YES
     Route: 048
  32. CLONAZEPAM. [Suspect]
     Active Substance: CLONAZEPAM
     Indication: ANXIETY
     Dosage: IN AM AND AT NIGHT,
     Route: 048
  33. BACLOFEN. [Concomitant]
     Active Substance: BACLOFEN
     Indication: MUSCLE SPASTICITY
     Route: 048
     Dates: start: 202001
  34. METFORMIN [Concomitant]
     Active Substance: METFORMIN HYDROCHLORIDE
     Indication: TYPE 2 DIABETES MELLITUS

REACTIONS (41)
  - Decubitus ulcer [Recovered/Resolved]
  - Pneumonia legionella [Recovered/Resolved]
  - Multiple sclerosis [Unknown]
  - Gait disturbance [Not Recovered/Not Resolved]
  - Immunodeficiency [Not Recovered/Not Resolved]
  - Fall [Unknown]
  - Seizure [Not Recovered/Not Resolved]
  - Photopsia [Recovered/Resolved]
  - Hypoaesthesia [Unknown]
  - Paraesthesia [Unknown]
  - Anxiety [Unknown]
  - Off label use [Recovered/Resolved]
  - Hallucination [Not Recovered/Not Resolved]
  - Hypertension [Not Recovered/Not Resolved]
  - Lhermitte^s sign [Not Recovered/Not Resolved]
  - Deafness [Unknown]
  - Endotracheal intubation [Recovered/Resolved]
  - Chest pain [Recovered/Resolved]
  - Cough [Not Recovered/Not Resolved]
  - Insomnia [Not Recovered/Not Resolved]
  - Oral herpes [Recovered/Resolved]
  - Muscle atrophy [Recovered/Resolved]
  - Bladder spasm [Not Recovered/Not Resolved]
  - Diabetic ketoacidosis [Not Recovered/Not Resolved]
  - Pneumonia aspiration [Recovering/Resolving]
  - Feeling abnormal [Recovered/Resolved]
  - Adverse drug reaction [Recovered/Resolved]
  - Back pain [Not Recovered/Not Resolved]
  - Septic shock [Recovered/Resolved]
  - Medical induction of coma [Unknown]
  - Musculoskeletal stiffness [Not Recovered/Not Resolved]
  - Acute kidney injury [Recovered/Resolved]
  - Muscle spasms [Not Recovered/Not Resolved]
  - Optic neuritis [Unknown]
  - Weight decreased [Not Recovered/Not Resolved]
  - Eye pain [Recovered/Resolved]
  - Intentional product use issue [Unknown]
  - Restless legs syndrome [Not Recovered/Not Resolved]
  - Electrocardiogram QT prolonged [Recovered/Resolved]
  - Herpes virus infection [Unknown]
  - Loss of consciousness [Recovered/Resolved]

NARRATIVE: CASE EVENT DATE: 2015
